FAERS Safety Report 5654813-9 (Version None)
Quarter: 2008Q1

REPORT INFORMATION
  Report Type: 
  Country: None (occurrence: None)
  Receive Date: 20080307
  Receipt Date: 20070809
  Transmission Date: 20080703
  Serious: Yes (Other)
  Sender: FDA-Public Use
  Company Number: A0666082A

PATIENT
  Age: 74 Year
  Sex: Male

DRUGS (9)
  1. REQUIP [Suspect]
     Indication: PARKINSON'S DISEASE
     Dosage: 1.5MG THREE TIMES PER DAY
     Route: 048
     Dates: start: 20070210
  2. DITROPAN [Suspect]
  3. SINEMET [Concomitant]
  4. AMANTADINE HCL [Concomitant]
  5. COQ10 [Concomitant]
  6. VITAMIN CAP [Concomitant]
  7. ZESTRIL [Concomitant]
  8. LISINOPRIL [Concomitant]
  9. ASPIRIN [Concomitant]

REACTIONS (5)
  - DYSARTHRIA [None]
  - GAIT DISTURBANCE [None]
  - HALLUCINATION [None]
  - INSOMNIA [None]
  - SOMNOLENCE [None]
